FAERS Safety Report 7267257-3 (Version None)
Quarter: 2011Q1

REPORT INFORMATION
  Report Type: 
  Country: None (occurrence: None)
  Receive Date: 20110201
  Receipt Date: 20110121
  Transmission Date: 20110831
  Serious: Yes (Life-Threatening)
  Sender: FDA-Public Use
  Company Number: TR-BAXTER-2011BH001855

PATIENT
  Age: 7 Month
  Sex: Male
  Weight: 7 kg

DRUGS (2)
  1. GAMMAGARD LIQUID [Suspect]
     Indication: HISTIOCYTOSIS HAEMATOPHAGIC
     Route: 042
     Dates: start: 20101229, end: 20101229
  2. GAMMAGARD LIQUID [Suspect]
     Indication: PRODUCT USED FOR UNKNOWN INDICATION
     Route: 042
     Dates: start: 20101229, end: 20101229

REACTIONS (2)
  - PYREXIA [None]
  - RASH ERYTHEMATOUS [None]
